FAERS Safety Report 8950415 (Version 2)
Quarter: 2012Q4

REPORT INFORMATION
  Report Type: 
  Country: IL (occurrence: IL)
  Receive Date: 20121206
  Receipt Date: 20121211
  Transmission Date: 20130627
  Serious: Yes (Other)
  Sender: FDA-Public Use
  Company Number: IL-ALLERGAN-1216659US

PATIENT
  Age: 64 Year
  Sex: Male

DRUGS (1)
  1. OZURDEX [Suspect]
     Indication: CENTRAL RETINAL VEIN OCCLUSION
     Dosage: 0.35 mg, single
     Route: 031
     Dates: start: 200602, end: 200602

REACTIONS (2)
  - Visual acuity reduced [Unknown]
  - Cataract [Unknown]
